FAERS Safety Report 4302467-6 (Version None)
Quarter: 2004Q1

REPORT INFORMATION
  Report Type: 
  Country: None (occurrence: None)
  Receive Date: 20040218
  Receipt Date: 20031022
  Transmission Date: 20041129
  Serious: Yes (Hospitalization)
  Sender: FDA-Public Use
  Company Number: 200317959US

PATIENT
  Age: 75 Year
  Sex: Female
  Weight: 54 kg

DRUGS (3)
  1. LANTUS [Suspect]
     Indication: DIABETES MELLITUS INSULIN-DEPENDENT
     Dosage: 6-7 U HS INJ
     Route: 042
  2. HEART MEDICATIONS [Concomitant]
  3. INSULIN HUMAN, INSULIN ISOPHANE, HUMAN BIOSYNTHETIC (HUMULIN) [Concomitant]

REACTIONS (1)
  - HYPERGLYCAEMIA [None]
